FAERS Safety Report 17482778 (Version 4)
Quarter: 2020Q3

REPORT INFORMATION
  Report Type: Report from Study
  Country: US (occurrence: US)
  Receive Date: 20200302
  Receipt Date: 20200714
  Transmission Date: 20201102
  Serious: No
  Sender: FDA-Public Use
  Company Number: NVSC2020US058841

PATIENT
  Age: 44 Year
  Sex: Female

DRUGS (4)
  1. COSENTYX [Suspect]
     Active Substance: SECUKINUMAB
     Indication: PSORIATIC ARTHROPATHY
     Dosage: 300 MG, QMO
     Route: 058
     Dates: start: 20191108
  2. COSENTYX [Suspect]
     Active Substance: SECUKINUMAB
     Dosage: 150 MG, Q2W
     Route: 058
  3. COSENTYX [Suspect]
     Active Substance: SECUKINUMAB
     Indication: PSORIATIC ARTHROPATHY
     Dosage: 150 MG
     Route: 065
     Dates: start: 20200206
  4. AIMOVIG [Suspect]
     Active Substance: ERENUMAB-AOOE
     Indication: PSORIATIC ARTHROPATHY
     Dosage: UNK
     Route: 065
     Dates: start: 20200210

REACTIONS (7)
  - Pruritus [Unknown]
  - Rash pruritic [Unknown]
  - Fungal skin infection [Unknown]
  - Rash [Unknown]
  - Tinea pedis [Unknown]
  - Vulvovaginal mycotic infection [Unknown]
  - Fatigue [Unknown]

NARRATIVE: CASE EVENT DATE: 202002
